FAERS Safety Report 7564428-3 (Version None)
Quarter: 2011Q2

REPORT INFORMATION
  Report Type: 
  Country: None (occurrence: None)
  Receive Date: 20110622
  Receipt Date: 20110610
  Transmission Date: 20111010
  Serious: Yes (Other)
  Sender: FDA-Public Use
  Company Number: PHHY2011ZA51708

PATIENT
  Sex: Female

DRUGS (1)
  1. EXFORGE [Suspect]
     Indication: RENAL DISORDER
     Dosage: 160MG VALSARTAN AND 10MG AMLODIPINE
     Dates: end: 20110127

REACTIONS (6)
  - HYPERTENSION [None]
  - URINE ALBUMIN/CREATININE RATIO INCREASED [None]
  - BLOOD GLUCOSE INCREASED [None]
  - GLYCOSYLATED HAEMOGLOBIN INCREASED [None]
  - MICROALBUMINURIA [None]
  - CREATINE URINE INCREASED [None]
